FAERS Safety Report 13062725 (Version 10)
Quarter: 2021Q4

REPORT INFORMATION
  Report Type: Report from Study
  Country: CA (occurrence: CA)
  Receive Date: 20161226
  Receipt Date: 20211223
  Transmission Date: 20220303
  Serious: Yes (Other)
  Sender: FDA-Public Use
  Company Number: PHHY2016CA176108

PATIENT
  Age: 64 Year
  Sex: Female

DRUGS (8)
  1. SANDOSTATIN LAR DEPOT [Suspect]
     Active Substance: OCTREOTIDE ACETATE
     Indication: Carcinoid tumour
     Dosage: 30 MG, QMO (EVERY 4 WEEKS)
     Route: 030
     Dates: start: 20150401
  2. SANDOSTATIN LAR DEPOT [Suspect]
     Active Substance: OCTREOTIDE ACETATE
     Indication: Neuroendocrine tumour
     Dosage: 20 MG
     Route: 030
     Dates: start: 20150511, end: 20210421
  3. SANDOSTATIN LAR DEPOT [Suspect]
     Active Substance: OCTREOTIDE ACETATE
     Dosage: 30 MG, Q4W
     Route: 030
     Dates: start: 20210518
  4. TRAMADOL [Concomitant]
     Active Substance: TRAMADOL
     Indication: Product used for unknown indication
     Dosage: QD
     Route: 065
  5. TYLENOL [Concomitant]
     Active Substance: ACETAMINOPHEN
     Indication: Product used for unknown indication
     Dosage: 1 DF, (37.5/325MG- 1 TAB EVERY 6-10HOURS)
     Route: 065
  6. PRAXIS [Concomitant]
     Indication: Product used for unknown indication
     Dosage: 81 MG, BID
     Route: 065
  7. SYNTHROID [Concomitant]
     Active Substance: LEVOTHYROXINE SODIUM
     Indication: Product used for unknown indication
     Dosage: 0.125 MG, QD
     Route: 065
  8. SYNTHROID [Concomitant]
     Active Substance: LEVOTHYROXINE SODIUM
     Dosage: 0.137 MG, QD (1 WEEK AGO)
     Route: 065

REACTIONS (14)
  - Femur fracture [Unknown]
  - Hip fracture [Unknown]
  - Pneumonia [Recovered/Resolved]
  - Fall [Unknown]
  - Hepatic neoplasm [Not Recovered/Not Resolved]
  - Abdominal hernia [Unknown]
  - Cancer in remission [Unknown]
  - Blood pressure systolic increased [Unknown]
  - Calcinosis [Unknown]
  - Body temperature decreased [Unknown]
  - Hepatic lesion [Unknown]
  - Abdominal mass [Unknown]
  - Injection site mass [Not Recovered/Not Resolved]
  - Injection site pain [Not Recovered/Not Resolved]

NARRATIVE: CASE EVENT DATE: 20170301
